FAERS Safety Report 8308113-9 (Version None)
Quarter: 2012Q2

REPORT INFORMATION
  Report Type: 
  Country: None (occurrence: None)
  Receive Date: 20120424
  Receipt Date: 20111107
  Transmission Date: 20120825
  Serious: Yes (Hospitalization)
  Sender: FDA-Public Use
  Company Number: US-ROCHE-1012155

PATIENT
  Sex: Female

DRUGS (5)
  1. HERCEPTIN [Suspect]
     Route: 042
  2. PACLITAXEL [Suspect]
     Indication: BREAST CANCER
     Route: 042
     Dates: start: 20000104
  3. HERCEPTIN [Suspect]
     Indication: BREAST CANCER
     Dosage: MOST RECENT DOSE ON 23/APR/2001
     Route: 042
     Dates: start: 20000104
  4. CYCLOPHOSPHAMIDE [Suspect]
     Indication: BREAST CANCER
     Route: 042
     Dates: start: 20000104
  5. DOXORUBICIN HCL [Suspect]
     Indication: BREAST CANCER
     Route: 042
     Dates: start: 20000104

REACTIONS (1)
  - VENA CAVA THROMBOSIS [None]
